FAERS Safety Report 20900686 (Version 1)
Quarter: 2022Q2

REPORT INFORMATION
  Report Type: Spontaneous
  Country: US (occurrence: None)
  Receive Date: 20220531
  Receipt Date: 20220531
  Transmission Date: 20220720
  Serious: No
  Sender: FDA-Public Use
  Company Number: None

PATIENT
  Age: 36 Year
  Sex: Female

DRUGS (1)
  1. KESIMPTA [Suspect]
     Active Substance: OFATUMUMAB
     Indication: Multiple sclerosis
     Dosage: 20 MG WEEKLY SUBCUTANEOUS
     Route: 058
     Dates: start: 20220502

REACTIONS (4)
  - Influenza like illness [None]
  - Muscle twitching [None]
  - Hypoaesthesia [None]
  - Facial paralysis [None]

NARRATIVE: CASE EVENT DATE: 20220525
